FAERS Safety Report 5786221-4 (Version None)
Quarter: 2008Q2

REPORT INFORMATION
  Report Type: 
  Country: None (occurrence: None)
  Receive Date: 20080624
  Receipt Date: 20070723
  Transmission Date: 20081010
  Serious: No
  Sender: FDA-Public Use
  Company Number: US-ASTRAZENECA-2007UW17847

PATIENT
  Age: 77 Year
  Sex: Female
  Weight: 58.5 kg

DRUGS (7)
  1. PULMICORT RESPULES [Suspect]
     Indication: ASTHMA
     Route: 055
  2. ALBUTEROL [Concomitant]
  3. IPRATROPIUM BROMIDE [Concomitant]
  4. LEVOTHYROXINE SODIUM [Concomitant]
  5. GABAPENTIN [Concomitant]
  6. SINGULAIR [Concomitant]
  7. PREDNISONE [Concomitant]

REACTIONS (1)
  - DIZZINESS [None]
